FAERS Safety Report 7037878-1 (Version None)
Quarter: 2010Q4

REPORT INFORMATION
  Report Type: 
  Country: None (occurrence: None)
  Receive Date: 20101011
  Receipt Date: 20101008
  Transmission Date: 20110411
  Serious: Yes (Other)
  Sender: FDA-Public Use
  Company Number: US-BRISTOL-MYERS SQUIBB COMPANY-15324916

PATIENT
  Age: 77 Year
  Sex: Male

DRUGS (3)
  1. COUMADIN [Suspect]
     Dates: start: 20090901
  2. WARFARIN SODIUM [Suspect]
     Dates: start: 20081201
  3. AMIODARONE [Concomitant]

REACTIONS (3)
  - ATRIAL FIBRILLATION [None]
  - INTERNATIONAL NORMALISED RATIO ABNORMAL [None]
  - LUNG OPERATION [None]
